FAERS Safety Report 5802156-2 (Version None)
Quarter: 2008Q3

REPORT INFORMATION
  Report Type: 
  Country: None (occurrence: None)
  Receive Date: 20080702
  Receipt Date: 20080625
  Transmission Date: 20090109
  Serious: Yes (Other)
  Sender: FDA-Public Use
  Company Number: 2008SP012730

PATIENT
  Age: 43 Year
  Sex: Male

DRUGS (3)
  1. TEMODAL [Suspect]
     Indication: DRUG USE FOR UNKNOWN INDICATION
     Dosage: 140 MG; QD
     Dates: start: 20080501, end: 20080601
  2. DEPAKENE [Concomitant]
  3. CORTIZONE [Concomitant]

REACTIONS (2)
  - BLOOD POTASSIUM INCREASED [None]
  - PLATELET COUNT DECREASED [None]
